FAERS Safety Report 8269068-9 (Version None)
Quarter: 2012Q2

REPORT INFORMATION
  Report Type: 
  Country: None (occurrence: None)
  Receive Date: 20120409
  Receipt Date: 20120330
  Transmission Date: 20120825
  Serious: Yes (Other)
  Sender: FDA-Public Use
  Company Number: BR-PFIZER INC-2011138494

PATIENT
  Age: 63 Year
  Sex: Male
  Weight: 70 kg

DRUGS (4)
  1. NAPRIX [Concomitant]
     Indication: BLOOD PRESSURE INCREASED
     Dosage: 1 (UNSPECIFIED) DAILY
     Dates: start: 20090101
  2. METOPROLOL SUCCINATE [Concomitant]
     Dosage: UNK
  3. LIPITOR [Suspect]
     Indication: BLOOD CHOLESTEROL
     Dosage: 40 MG, 1X/DAY
     Route: 048
     Dates: start: 20040101, end: 20120101
  4. ASPIRIN [Concomitant]
     Dosage: UNK

REACTIONS (5)
  - BLINDNESS [None]
  - VISUAL IMPAIRMENT [None]
  - HEADACHE [None]
  - ARTERIAL CATHETERISATION [None]
  - CATARACT [None]
